FAERS Safety Report 21998380 (Version 1)
Quarter: 2023Q1

REPORT INFORMATION
  Report Type: Spontaneous
  Country: FR (occurrence: FR)
  Receive Date: 20230216
  Receipt Date: 20230216
  Transmission Date: 20230417
  Serious: Yes (Hospitalization)
  Sender: FDA-Public Use
  Company Number: FR-AFSSAPS-SE2023000060

PATIENT
  Age: 31 Year
  Sex: Male

DRUGS (3)
  1. TRAMADOL [Suspect]
     Active Substance: TRAMADOL
     Indication: Toxicity to various agents
     Dosage: 6 DOSAGE FORM,1 TOTAL
     Route: 048
     Dates: start: 20210422, end: 20210422
  2. EFFERALGAN [Suspect]
     Active Substance: ACETAMINOPHEN
     Indication: Toxicity to various agents
     Dosage: 6 DOSAGE FORM, 1 TOTAL
     Route: 048
     Dates: start: 20210422, end: 20210422
  3. DAFALGAN [Suspect]
     Active Substance: ACETAMINOPHEN
     Indication: Toxicity to various agents
     Dosage: 12 DOSAGE FORM, 1 TOTAL
     Route: 048
     Dates: start: 20210422, end: 20210422

REACTIONS (2)
  - Analgesic drug level increased [Recovered/Resolved]
  - Intentional overdose [Recovered/Resolved]

NARRATIVE: CASE EVENT DATE: 20210422
